FAERS Safety Report 8159067-X (Version None)
Quarter: 2012Q1

REPORT INFORMATION
  Report Type: 
  Country: None (occurrence: None)
  Receive Date: 20120217
  Receipt Date: 20120206
  Transmission Date: 20120608
  Serious: Yes (Death)
  Sender: FDA-Public Use
  Company Number: 2012ZX000059

PATIENT
  Sex: Female

DRUGS (1)
  1. SUMAVEL DOSEPRO [Suspect]
     Indication: MIGRAINE
     Dates: start: 20100801

REACTIONS (1)
  - DEATH [None]
